FAERS Safety Report 6688172-X (Version None)
Quarter: 2010Q2

REPORT INFORMATION
  Report Type: 
  Country: None (occurrence: None)
  Receive Date: 20100420
  Receipt Date: 20100412
  Transmission Date: 20101027
  Serious: Yes (Hospitalization)
  Sender: FDA-Public Use
  Company Number: JP-SANOFI-AVENTIS-2010SA011581

PATIENT
  Age: 62 Year
  Sex: Male
  Weight: 75 kg

DRUGS (29)
  1. LASIX [Suspect]
     Route: 048
     Dates: start: 20090725, end: 20090725
  2. LASIX [Suspect]
     Route: 048
     Dates: start: 20090726, end: 20090731
  3. LASIX [Suspect]
     Route: 048
     Dates: start: 20090801, end: 20090801
  4. ALDACTONE [Suspect]
     Route: 048
     Dates: start: 20090725, end: 20090731
  5. ALDACTONE [Suspect]
     Route: 048
     Dates: start: 20090801, end: 20090801
  6. PLAVIX [Concomitant]
     Route: 048
     Dates: start: 20090722, end: 20090722
  7. PLAVIX [Concomitant]
     Route: 048
     Dates: start: 20090725, end: 20090826
  8. ASPIRIN [Concomitant]
     Route: 048
     Dates: start: 20090722
  9. HEPARIN [Concomitant]
     Dosage: DOSE:10000 UNIT(S)
     Route: 042
     Dates: start: 20090722, end: 20090722
  10. HEPARIN [Concomitant]
     Dosage: DOSE:480 UNIT(S)
     Route: 041
     Dates: start: 20090722, end: 20090722
  11. HEPARIN [Concomitant]
     Dosage: DOSE:560 UNIT(S)
     Route: 041
     Dates: start: 20090722, end: 20090722
  12. NICORANDIL [Concomitant]
     Dosage: 2MG/HOUR
     Route: 041
     Dates: start: 20090722, end: 20090722
  13. NORADRENALINE [Concomitant]
     Dosage: 0.1-0.3 MG/HOUR
     Route: 041
     Dates: start: 20090722, end: 20090723
  14. DOBUTAMINE [Concomitant]
     Dosage: 4.5-9.0 MG/HOUR
     Route: 041
     Dates: start: 20090722, end: 20090722
  15. FENTAL [Concomitant]
     Indication: POSTOPERATIVE ANALGESIA
     Dosage: 25-50 MICROG/HOUR
     Route: 041
     Dates: start: 20090722, end: 20090725
  16. PROPOFOL [Concomitant]
     Indication: ANALGESIC THERAPY
     Dosage: 200MG/HOUR
     Route: 041
     Dates: start: 20090722, end: 20090723
  17. DEXMEDETOMIDINE HYDROCHLORIDE [Concomitant]
     Indication: ANALGESIC THERAPY
     Dosage: 8.28 UG/HOUR
     Route: 041
     Dates: start: 20090723, end: 20090723
  18. ZANTAC [Concomitant]
     Indication: PROPHYLAXIS
     Route: 042
     Dates: start: 20090723, end: 20090724
  19. PANTOL [Concomitant]
     Indication: PROPHYLAXIS
     Route: 042
     Dates: start: 20090723, end: 20090724
  20. NOVOLIN R [Concomitant]
     Indication: DIABETES MELLITUS
     Dosage: 2-5 UNITS/HOUR DOSE:2 UNIT(S)
     Route: 041
     Dates: start: 20090723, end: 20090725
  21. CEFAMEZIN ^FUJISAWA^ [Concomitant]
     Indication: PROPHYLAXIS
     Route: 042
     Dates: start: 20090723, end: 20090725
  22. TAKEPRON [Concomitant]
     Indication: PROPHYLAXIS
     Route: 048
     Dates: start: 20090725
  23. PURSENNID /SCH/ [Concomitant]
     Indication: PROPHYLAXIS
     Route: 048
     Dates: start: 20090725
  24. MAGNESIUM OXIDE [Concomitant]
     Indication: PROPHYLAXIS
     Route: 048
     Dates: start: 20090725
  25. LIPITOR [Concomitant]
     Indication: HYPERLIPIDAEMIA
     Route: 048
     Dates: start: 20090725
  26. NORVASC [Concomitant]
     Indication: HYPERTENSION
     Route: 048
     Dates: start: 20090726
  27. TAMBOCOR [Concomitant]
     Indication: PROPHYLAXIS
     Route: 048
     Dates: start: 20090727, end: 20090801
  28. HUMALOG [Concomitant]
     Indication: DIABETES MELLITUS
     Dosage: 12-24 UNITS/DAY DOSE:4 UNIT(S)
     Route: 042
     Dates: start: 20090725
  29. AMPICILLIN AND SULBACTAM [Concomitant]
     Indication: INFECTION PROPHYLAXIS
     Route: 042
     Dates: start: 20090805, end: 20090810

REACTIONS (1)
  - CEREBRAL INFARCTION [None]
